FAERS Safety Report 6284990-0 (Version None)
Quarter: 2009Q3

REPORT INFORMATION
  Report Type: 
  Country: None (occurrence: None)
  Receive Date: 20090723
  Receipt Date: 20090701
  Transmission Date: 20100115
  Serious: Yes (Hospitalization)
  Sender: FDA-Public Use
  Company Number: NL-1168641

PATIENT
  Age: 75 Year
  Sex: Male

DRUGS (4)
  1. TRAVATAN [Suspect]
     Dosage: 1 GTT QD OS, OPHTHALMIC
     Route: 047
  2. TEVETEN [Concomitant]
  3. SIMVASTATIN [Concomitant]
  4. ASCOL (CARBASALATE CALCIUM) [Concomitant]

REACTIONS (1)
  - ARRHYTHMIA [None]
